FAERS Safety Report 17958861 (Version 1)
Quarter: 2020Q2

REPORT INFORMATION
  Report Type: Report from Study
  Country: DE (occurrence: DE)
  Receive Date: 20200629
  Receipt Date: 20200629
  Transmission Date: 20200714
  Serious: Yes (Hospitalization)
  Sender: FDA-Public Use
  Company Number: DE-JNJFOC-20200529826

PATIENT
  Age: 62 Year
  Weight: 43 kg

DRUGS (1)
  1. ERDAFITINIB. [Suspect]
     Active Substance: ERDAFITINIB
     Indication: NEOPLASM
     Dosage: MEDICATION KIT NUMBER 891-6108
     Route: 048
     Dates: start: 20200130

REACTIONS (2)
  - Pyrexia [Recovering/Resolving]
  - Pleural effusion [Not Recovered/Not Resolved]

NARRATIVE: CASE EVENT DATE: 20200522
